FAERS Safety Report 8644572 (Version 3)
Quarter: 2012Q4

REPORT INFORMATION
  Report Type: 
  Country: JP (occurrence: JP)
  Receive Date: 20120629
  Receipt Date: 20121212
  Transmission Date: 20130627
  Serious: No
  Sender: FDA-Public Use
  Company Number: JP-ALLERGAN-1208753US

PATIENT
  Age: 49 Year
  Sex: Female

DRUGS (3)
  1. AIPHAGAN [Suspect]
     Indication: GLAUCOMA
     Dosage: 1 gtt, qd, each (both eyes)
     Route: 047
     Dates: start: 20120525, end: 20120525
  2. LUMIGAN [Concomitant]
     Indication: DRUG USE FOR UNKNOWN INDICATION
     Dosage: UNK
     Dates: end: 20120525
  3. AZOPT [Concomitant]
     Indication: DRUG USE FOR UNKNOWN INDICATION
     Dosage: UNK
     Dates: end: 20120525

REACTIONS (7)
  - Malaise [Not Recovered/Not Resolved]
  - Circumoral oedema [Not Recovered/Not Resolved]
  - Eye swelling [Not Recovered/Not Resolved]
  - Circumoral oedema [Not Recovered/Not Resolved]
  - Erythema [Not Recovered/Not Resolved]
  - Eye allergy [Unknown]
  - Dermatitis contact [Unknown]
